FAERS Safety Report 6724806-9 (Version None)
Quarter: 2010Q2

REPORT INFORMATION
  Report Type: 
  Country: None (occurrence: None)
  Receive Date: 20100513
  Receipt Date: 20100513
  Transmission Date: 20101027
  Serious: Yes (Hospitalization)
  Sender: FDA-Public Use
  Company Number: None

PATIENT
  Age: 57 Year
  Weight: 108.8633 kg

DRUGS (1)
  1. MAGNEVIST [Suspect]

REACTIONS (6)
  - BALANCE DISORDER [None]
  - ECONOMIC PROBLEM [None]
  - HEADACHE [None]
  - MENTAL IMPAIRMENT [None]
  - MUSCULAR WEAKNESS [None]
  - QUALITY OF LIFE DECREASED [None]
